FAERS Safety Report 15291529 (Version 3)
Quarter: 2018Q4

REPORT INFORMATION
  Report Type: Spontaneous
  Country: DE (occurrence: DE)
  Receive Date: 20180817
  Receipt Date: 20181023
  Transmission Date: 20190204
  Serious: Yes (Hospitalization, Other)
  Sender: FDA-Public Use
  Company Number: DE-TEVA-2018-DE-941525

PATIENT
  Age: 34 Year
  Sex: Male

DRUGS (21)
  1. OLANZAPIN [Suspect]
     Active Substance: OLANZAPINE
     Route: 048
     Dates: start: 20170815, end: 20170910
  2. CLOZAPIN [Suspect]
     Active Substance: CLOZAPINE
     Dosage: 100 MILLIGRAM DAILY;
     Route: 048
     Dates: start: 20170909
  3. CLOZAPIN [Suspect]
     Active Substance: CLOZAPINE
     Dosage: 25 MILLIGRAM DAILY;
     Route: 048
     Dates: start: 20170906, end: 20170907
  4. ZUCLOPENTHIXOL [Concomitant]
     Active Substance: ZUCLOPENTHIXOL
     Dosage: 200 MILLIGRAM DAILY;
     Route: 048
     Dates: start: 20170822, end: 20170910
  5. CLOZAPIN [Suspect]
     Active Substance: CLOZAPINE
     Dosage: 50 MILLIGRAM DAILY;
     Route: 048
  6. DIAZEPAM. [Suspect]
     Active Substance: DIAZEPAM
     Route: 048
     Dates: start: 20170826, end: 20170905
  7. AKINETON [Concomitant]
     Active Substance: BIPERIDEN HYDROCHLORIDE
     Dosage: 4 MILLIGRAM DAILY;
     Route: 048
     Dates: start: 20170808, end: 20170910
  8. DIAZEPAM. [Suspect]
     Active Substance: DIAZEPAM
     Route: 048
     Dates: start: 20170907, end: 20170909
  9. LITHIUM APOGEPHA [Concomitant]
     Active Substance: LITHIUM CARBONATE
     Dosage: 900 MILLIGRAM DAILY;
     Route: 048
     Dates: start: 20170830, end: 20170905
  10. OLANZAPIN [Suspect]
     Active Substance: OLANZAPINE
     Route: 048
     Dates: start: 20170810, end: 20170811
  11. LITHIUM APOGEPHA [Concomitant]
     Active Substance: LITHIUM CARBONATE
     Dosage: 1350 MILLIGRAM DAILY;
     Route: 048
     Dates: start: 20170906, end: 20170910
  12. OLANZAPIN [Suspect]
     Active Substance: OLANZAPINE
     Dosage: 20 MILLIGRAM DAILY;
     Route: 048
     Dates: start: 20170812, end: 20170814
  13. ZUCLOPENTHIXOL [Suspect]
     Active Substance: ZUCLOPENTHIXOL
     Dosage: 150 MILLIGRAM DAILY;
     Route: 048
     Dates: start: 20170821
  14. DIAZEPAM. [Suspect]
     Active Substance: DIAZEPAM
     Route: 048
     Dates: start: 20170906
  15. DIAZEPAM. [Suspect]
     Active Substance: DIAZEPAM
     Route: 048
     Dates: start: 20170804, end: 20170825
  16. ABILIFY [Suspect]
     Active Substance: ARIPIPRAZOLE
     Dosage: OM, FOR WEEKS
     Route: 048
     Dates: end: 20170910
  17. CLEXANE [Concomitant]
     Active Substance: ENOXAPARIN SODIUM
     Indication: ANTICOAGULANT THERAPY
     Dosage: .6 IU (INTERNATIONAL UNIT) DAILY;
     Route: 058
     Dates: start: 20170809
  18. CLOZAPIN [Suspect]
     Active Substance: CLOZAPINE
     Dosage: 150 MILLIGRAM DAILY;
     Route: 048
     Dates: start: 20170910
  19. DIAZEPAM. [Suspect]
     Active Substance: DIAZEPAM
     Dosage: 20 MILLIGRAM DAILY;
     Route: 048
     Dates: start: 20170803, end: 20170803
  20. DIAZEPAM. [Suspect]
     Active Substance: DIAZEPAM
     Route: 048
     Dates: start: 20170910
  21. LITHIUM APOGEPHA [Concomitant]
     Active Substance: LITHIUM CARBONATE
     Dosage: 450 MILLIGRAM DAILY;
     Route: 048
     Dates: start: 20170829

REACTIONS (17)
  - Pleural effusion [Unknown]
  - Dysphagia [Recovered/Resolved]
  - Patient restraint [Unknown]
  - Tension [Unknown]
  - Aggression [Unknown]
  - Thinking abnormal [Unknown]
  - Aspiration [Unknown]
  - Respiratory failure [Recovered/Resolved]
  - Hyporeflexia [Unknown]
  - Respiratory failure [Recovered/Resolved]
  - Psychotic symptom [Unknown]
  - Duodenitis [Unknown]
  - Gastritis [Unknown]
  - Self-injurious ideation [Unknown]
  - Salivary hypersecretion [Recovered/Resolved]
  - Pneumonia aspiration [Recovered/Resolved]
  - Delusion [Unknown]

NARRATIVE: CASE EVENT DATE: 20170909
